FAERS Safety Report 13457225 (Version 1)
Quarter: 2017Q2

REPORT INFORMATION
  Report Type: Report from Study
  Country: JP (occurrence: JP)
  Receive Date: 20170419
  Receipt Date: 20170419
  Transmission Date: 20170830
  Serious: Yes (Hospitalization)
  Sender: FDA-Public Use
  Company Number: JP-ELI_LILLY_AND_COMPANY-JP201510004404

PATIENT
  Sex: Female

DRUGS (1)
  1. FORTEO [Suspect]
     Active Substance: TERIPARATIDE
     Indication: PRODUCT USED FOR UNKNOWN INDICATION
     Dosage: UNK
     Route: 058
     Dates: start: 201506

REACTIONS (6)
  - Fall [Recovered/Resolved]
  - Viral upper respiratory tract infection [Unknown]
  - Bone fissure [Unknown]
  - Contusion [Unknown]
  - Accidental overdose [Unknown]
  - Emphysema [Unknown]

NARRATIVE: CASE EVENT DATE: 2015
